FAERS Safety Report 7289224-6 (Version None)
Quarter: 2011Q1

REPORT INFORMATION
  Report Type: 
  Country: None (occurrence: None)
  Receive Date: 20110211
  Receipt Date: 20100218
  Transmission Date: 20110831
  Serious: Yes (Other)
  Sender: FDA-Public Use
  Company Number: NL-NOVEN-10NL001752

PATIENT
  Age: 48 Year
  Sex: Male

DRUGS (3)
  1. BROMAZEPAM [Concomitant]
     Indication: PRODUCT USED FOR UNKNOWN INDICATION
     Dosage: 3 MG, UNKNOWN
     Route: 048
  2. VENLAFAXINE [Concomitant]
     Indication: PRODUCT USED FOR UNKNOWN INDICATION
     Dosage: 75 MG, UNKNOWN
     Route: 048
  3. PAROXETINE HCL [Suspect]
     Indication: DEPRESSION
     Dosage: 20 MG, UNKNOWN
     Route: 048

REACTIONS (2)
  - SUICIDAL IDEATION [None]
  - AGGRESSION [None]
